FAERS Safety Report 4530797-1 (Version None)
Quarter: 2004Q4

REPORT INFORMATION
  Report Type: 
  Country: None (occurrence: None)
  Receive Date: 20041216
  Receipt Date: 20041126
  Transmission Date: 20050328
  Serious: Yes (Other)
  Sender: FDA-Public Use
  Company Number: EWC041241636

PATIENT
  Age: 61 Year
  Sex: Male

DRUGS (6)
  1. ZYPREXA [Suspect]
     Indication: BIPOLAR DISORDER
     Dosage: 15 MG DAY
     Dates: start: 20041013, end: 20041123
  2. LORAZEPAM [Concomitant]
  3. HYDROXYZINE HYDROCHLORIDE [Concomitant]
  4. FLURAZEPAM [Concomitant]
  5. FOLIC ACID [Concomitant]
  6. VITAMIN B-12 [Concomitant]

REACTIONS (2)
  - RASH [None]
  - SKIN DESQUAMATION [None]
